FAERS Safety Report 5402207-3 (Version None)
Quarter: 2007Q3

REPORT INFORMATION
  Report Type: 
  Country: None (occurrence: None)
  Receive Date: 20070727
  Receipt Date: 20070719
  Transmission Date: 20080115
  Serious: Yes (Hospitalization)
  Sender: FDA-Public Use
  Company Number: 2007BI010874

PATIENT
  Age: 50 Year
  Sex: Female
  Weight: 65.318 kg

DRUGS (2)
  1. AVONEX [Suspect]
     Indication: MULTIPLE SCLEROSIS
     Dosage: 30 UG;QW;IM
     Route: 030
     Dates: start: 20060301
  2. CHEMOTHERAPY [Concomitant]

REACTIONS (13)
  - BACK PAIN [None]
  - BONE DISORDER [None]
  - CONDITION AGGRAVATED [None]
  - EYE IRRITATION [None]
  - GAIT DISTURBANCE [None]
  - INCREASED UPPER AIRWAY SECRETION [None]
  - LACRIMATION INCREASED [None]
  - MULTIPLE SCLEROSIS [None]
  - MYELITIS TRANSVERSE [None]
  - NECK PAIN [None]
  - SPINAL DISORDER [None]
  - URINARY TRACT INFECTION [None]
  - VISUAL DISTURBANCE [None]
